FAERS Safety Report 20404513 (Version 3)
Quarter: 2022Q1

REPORT INFORMATION
  Report Type: Spontaneous
  Country: US (occurrence: US)
  Receive Date: 20220131
  Receipt Date: 20220310
  Transmission Date: 20220423
  Serious: Yes (Other)
  Sender: FDA-Public Use
  Company Number: US-BAYER-2022A013467

PATIENT
  Age: 33 Year
  Sex: Male

DRUGS (7)
  1. JIVI [Suspect]
     Active Substance: DAMOCTOCOG ALFA PEGOL
     Dosage: 5100 U, BIW
     Route: 042
  2. JIVI [Suspect]
     Active Substance: DAMOCTOCOG ALFA PEGOL
     Dosage: 5100 U, PRN
     Route: 042
  3. JIVI [Suspect]
     Active Substance: DAMOCTOCOG ALFA PEGOL
     Dosage: 5100 U, ( 2 BLEEDS DOSES AND ONE PROPHYLAXIS)TREATMENT FOR UPPER BACK BLEED
     Route: 042
  4. JIVI [Suspect]
     Active Substance: DAMOCTOCOG ALFA PEGOL
     Dosage: 1 DF, FOR THE LEFT ANKLE BLEED TREATMENT
     Dates: start: 20220217, end: 20220217
  5. JIVI [Suspect]
     Active Substance: DAMOCTOCOG ALFA PEGOL
     Dosage: 1 DF, FOR THE LEFT ANKLE BLEED TREATMENT
     Dates: start: 20220218, end: 20220218
  6. JIVI [Suspect]
     Active Substance: DAMOCTOCOG ALFA PEGOL
     Dosage: 1 DF, FOR THE LEFT ELBOW BLEED AND JAW INJURY TREATMENT
     Dates: start: 20220227, end: 20220227
  7. JIVI [Suspect]
     Active Substance: DAMOCTOCOG ALFA PEGOL
     Dosage: 1 DF, FOR THE LEFT ELBOW BLEED AND JAW INJURY TREATMENT
     Dates: start: 20220228, end: 20220228

REACTIONS (4)
  - Haemorrhage [Recovered/Resolved]
  - Haemarthrosis [Recovered/Resolved]
  - Haemarthrosis [Recovered/Resolved]
  - Face injury [None]

NARRATIVE: CASE EVENT DATE: 20220121
